FAERS Safety Report 5767839-1 (Version None)
Quarter: 2008Q2

REPORT INFORMATION
  Report Type: 
  Country: None (occurrence: None)
  Receive Date: 20080612
  Receipt Date: 20080608
  Transmission Date: 20081010
  Serious: Yes (Other)
  Sender: FDA-Public Use
  Company Number: PHHY2008AT07428

PATIENT
  Age: 62 Year
  Sex: Female

DRUGS (5)
  1. RASILEZ [Suspect]
     Indication: HYPERTENSION
     Dosage: 150 MG, UNK
     Route: 048
     Dates: start: 20080421, end: 20080504
  2. RASILEZ [Suspect]
     Dosage: 300 MG/DAY
     Route: 048
     Dates: start: 20080504
  3. ALDACTONE [Concomitant]
  4. NORVASC [Concomitant]
  5. FLUDEX [Concomitant]
     Indication: HYPERTENSION
     Dosage: 1 DF/DAY
     Dates: start: 20080505, end: 20080506

REACTIONS (2)
  - ANGLE CLOSURE GLAUCOMA [None]
  - BLOOD PRESSURE DECREASED [None]
